FAERS Safety Report 12537682 (Version 1)
Quarter: 2016Q3

REPORT INFORMATION
  Report Type: Spontaneous
  Country: US (occurrence: US)
  Receive Date: 20160707
  Receipt Date: 20160707
  Transmission Date: 20161109
  Serious: No
  Sender: FDA-Public Use
  Company Number: US-ASTRAZENECA-2016SE58280

PATIENT
  Age: 21846 Day
  Sex: Female
  Weight: 54.9 kg

DRUGS (14)
  1. NORCO OXYCODONE [Concomitant]
     Indication: ILL-DEFINED DISORDER
     Route: 065
     Dates: start: 1998
  2. TOPIRAMATE. [Concomitant]
     Active Substance: TOPIRAMATE
     Indication: NEURALGIA
     Route: 065
  3. BUTALBITAL ACETAMINOPHEN CAFFEINE 50-325-40 MG [Concomitant]
     Indication: MIGRAINE
     Dosage: 50-325-40 MG IS BID
     Route: 065
     Dates: start: 1999
  4. ATORVASTATIN [Concomitant]
     Active Substance: ATORVASTATIN
     Indication: BLOOD CHOLESTEROL ABNORMAL
     Route: 065
     Dates: start: 201512
  5. FLUTICASONE [Concomitant]
     Active Substance: FLUTICASONE\FLUTICASONE PROPIONATE
     Indication: SEASONAL ALLERGY
     Dosage: 50 MCG 1 SPRAY IN EACH NOSTRIL,DAILY
     Route: 045
  6. BOTOX [Concomitant]
     Active Substance: ONABOTULINUMTOXINA
  7. MOVANTIK [Suspect]
     Active Substance: NALOXEGOL OXALATE
     Indication: CONSTIPATION
     Dosage: 25.0MG UNKNOWN
     Route: 048
     Dates: start: 20160527
  8. X LAX [Concomitant]
  9. MOVANTIK [Suspect]
     Active Substance: NALOXEGOL OXALATE
     Indication: CONSTIPATION
     Dosage: 25.0MG UNKNOWN
     Route: 048
     Dates: start: 20160523
  10. XANAX [Concomitant]
     Active Substance: ALPRAZOLAM
     Indication: MUSCULOSKELETAL DISCOMFORT
     Route: 065
  11. GABAPENTIN. [Concomitant]
     Active Substance: GABAPENTIN
     Indication: MIGRAINE
     Dosage: 300.0MG UNKNOWN
     Route: 065
     Dates: start: 1999
  12. MOVANTIK [Suspect]
     Active Substance: NALOXEGOL OXALATE
     Indication: CONSTIPATION
     Dosage: 25.0MG UNKNOWN
     Route: 048
     Dates: start: 20160525
  13. SERAX [Concomitant]
     Active Substance: OXAZEPAM
     Indication: ANXIETY
     Route: 065
  14. FLUTICASONE [Concomitant]
     Active Substance: FLUTICASONE\FLUTICASONE PROPIONATE
     Indication: SINUS DISORDER
     Dosage: 50 MCG 1 SPRAY IN EACH NOSTRIL,DAILY
     Route: 045

REACTIONS (2)
  - Constipation [Unknown]
  - Intentional product misuse [Unknown]

NARRATIVE: CASE EVENT DATE: 20160523
